FAERS Safety Report 8995175 (Version 1)
Quarter: 2012Q4

REPORT INFORMATION
  Report Type: Spontaneous
  Country: US (occurrence: None)
  Receive Date: 20121228
  Receipt Date: 20121228
  Transmission Date: 20130627
  Serious: No
  Sender: FDA-Public Use
  Company Number: None

PATIENT
  Age: 60 Year
  Sex: Male
  Weight: 97.5 kg

DRUGS (2)
  1. MIDAZOLAM [Suspect]
     Indication: CORONARY STENT PLACEMENT
     Dosage: 0.5 MG ONCE IV
     Route: 042
     Dates: start: 20121016, end: 20121016
  2. FENTANYL [Suspect]
     Indication: CORONARY STENT PLACEMENT
     Dosage: 12.5 MCG ONCE IV
     Route: 042
     Dates: start: 20121016, end: 20121016

REACTIONS (1)
  - Hypotension [None]
